FAERS Safety Report 8218074-9 (Version None)
Quarter: 2012Q1

REPORT INFORMATION
  Report Type: 
  Country: None (occurrence: None)
  Receive Date: 20120319
  Receipt Date: 20120316
  Transmission Date: 20120608
  Serious: Yes (Other)
  Sender: FDA-Public Use
  Company Number: US-PFIZER INC-2012070044

PATIENT
  Sex: Female

DRUGS (2)
  1. LIPITOR [Suspect]
     Indication: BLOOD CHOLESTEROL INCREASED
     Dosage: 40 MG, 1X/DAY
     Route: 048
     Dates: start: 20120101
  2. PREDNISOLONE [Concomitant]
     Dosage: UNK

REACTIONS (8)
  - MUSCLE DISORDER [None]
  - ASTHMA [None]
  - BRONCHITIS [None]
  - PULMONARY THROMBOSIS [None]
  - DYSPNOEA [None]
  - PNEUMONIA [None]
  - SWELLING FACE [None]
  - PHARYNGEAL OEDEMA [None]
